FAERS Safety Report 10672659 (Version 2)
Quarter: 2014Q4

REPORT INFORMATION
  Report Type: Spontaneous
  Country: AT (occurrence: AT)
  Receive Date: 20141223
  Receipt Date: 20141223
  Transmission Date: 20150529
  Serious: Yes (Hospitalization, Other)
  Sender: FDA-Public Use
  Company Number: AT-ASTRAZENECA-2014SE77525

PATIENT
  Age: 52 Year
  Sex: Female

DRUGS (14)
  1. DEPAKINE [Suspect]
     Active Substance: VALPROATE SODIUM
     Route: 048
     Dates: start: 20140203, end: 20140204
  2. DEPAKINE [Suspect]
     Active Substance: VALPROATE SODIUM
     Route: 048
     Dates: start: 20140205, end: 20140208
  3. RIVOTRIL [Suspect]
     Active Substance: CLONAZEPAM
     Route: 048
     Dates: start: 20140203, end: 20140214
  4. SAROTEN RETARD [Suspect]
     Active Substance: AMITRIPTYLINE
     Route: 048
     Dates: start: 20140205, end: 20140213
  5. HYDAL [Suspect]
     Active Substance: HYDROMORPHONE HYDROCHLORIDE
     Route: 048
     Dates: start: 20140203, end: 20140213
  6. LYRICA [Suspect]
     Active Substance: PREGABALIN
     Route: 048
     Dates: start: 20140214, end: 20140218
  7. SAROTEN RETARD [Suspect]
     Active Substance: AMITRIPTYLINE
     Route: 048
     Dates: start: 20140203, end: 20140204
  8. DEPAKINE [Suspect]
     Active Substance: VALPROATE SODIUM
     Route: 048
     Dates: start: 20140209, end: 20140213
  9. SEROQUEL [Suspect]
     Active Substance: QUETIAPINE FUMARATE
     Route: 048
     Dates: start: 20140203, end: 20140204
  10. LYRICA [Suspect]
     Active Substance: PREGABALIN
     Route: 048
     Dates: start: 20140203, end: 20140204
  11. SEROQUEL [Suspect]
     Active Substance: QUETIAPINE FUMARATE
     Route: 048
     Dates: start: 20140205, end: 20140211
  12. LYRICA [Suspect]
     Active Substance: PREGABALIN
     Route: 048
     Dates: start: 20140205, end: 20140213
  13. SAROTEN RETARD [Suspect]
     Active Substance: AMITRIPTYLINE
     Route: 048
     Dates: start: 20140214, end: 20140215
  14. DEPAKINE [Suspect]
     Active Substance: VALPROATE SODIUM
     Route: 048
     Dates: start: 20140214, end: 20140218

REACTIONS (7)
  - Sedation [Unknown]
  - Altered state of consciousness [Unknown]
  - Somnolence [Unknown]
  - Depression [Unknown]
  - Confusional state [None]
  - Disorientation [None]
  - Delirium [Recovered/Resolved]

NARRATIVE: CASE EVENT DATE: 20140209
